FAERS Safety Report 21262094 (Version 1)
Quarter: 2022Q3

REPORT INFORMATION
  Report Type: Report from Study
  Country: US (occurrence: US)
  Receive Date: 20220827
  Receipt Date: 20220827
  Transmission Date: 20221026
  Serious: Yes (Hospitalization, Other)
  Sender: FDA-Public Use
  Company Number: US-ABBVIE-22K-163-4518448-00

PATIENT
  Age: 60 Year
  Sex: Female

DRUGS (3)
  1. SKYRIZI [Suspect]
     Active Substance: RISANKIZUMAB-RZAA
     Indication: Psoriasis
     Route: 058
  2. JANSSEN COVID-19 VACCINE [Concomitant]
     Active Substance: AD26.COV2.S
     Indication: COVID-19 immunisation
     Dosage: 1ST DOSE
     Route: 030
     Dates: start: 20210811, end: 20210811
  3. JANSSEN COVID-19 VACCINE [Concomitant]
     Active Substance: AD26.COV2.S
     Dosage: 2ND DOSE
     Route: 030

REACTIONS (12)
  - Cataract [Not Recovered/Not Resolved]
  - Renal disorder [Recovered/Resolved]
  - Paraplegia [Unknown]
  - Intervertebral disc protrusion [Unknown]
  - Sciatica [Recovering/Resolving]
  - Arthritis [Recovering/Resolving]
  - Hallucination [Unknown]
  - Neuropathy peripheral [Unknown]
  - Arthritis [Unknown]
  - Bursitis [Unknown]
  - Polyp [Unknown]
  - Fatigue [Recovering/Resolving]

NARRATIVE: CASE EVENT DATE: 20211101
